FAERS Safety Report 18911184 (Version 2)
Quarter: 2021Q1

REPORT INFORMATION
  Report Type: Spontaneous
  Country: US (occurrence: US)
  Receive Date: 20210218
  Receipt Date: 20210331
  Transmission Date: 20210420
  Serious: Yes (Hospitalization)
  Sender: FDA-Public Use
  Company Number: US-NOVOPROD-786450

PATIENT
  Age: 80 Year
  Sex: Male

DRUGS (2)
  1. NOVOLOG [Suspect]
     Active Substance: INSULIN ASPART
     Indication: TYPE 1 DIABETES MELLITUS
     Dosage: 25?30 UNITS
     Route: 058
     Dates: start: 20150101
  2. NOVOLOG [Suspect]
     Active Substance: INSULIN ASPART
     Dosage: 15 IU(TWO SEPARATE UNITS FOR TREATMENT)
     Route: 058

REACTIONS (7)
  - Product quality issue [Unknown]
  - Blood glucose increased [Recovered/Resolved]
  - Pain in extremity [Recovered/Resolved]
  - Abdominal pain upper [Recovered/Resolved]
  - Dyspepsia [Recovered/Resolved]
  - Chest pain [Recovered/Resolved]
  - Vomiting [Recovered/Resolved]

NARRATIVE: CASE EVENT DATE: 20210125
